FAERS Safety Report 24351356 (Version 1)
Quarter: 2024Q3

REPORT INFORMATION
  Report Type: Report from Study
  Country: AT (occurrence: AT)
  Receive Date: 20240923
  Receipt Date: 20240923
  Transmission Date: 20241017
  Serious: No
  Sender: ROCHE
  Company Number: AT-ROCHE-2275904

PATIENT
  Age: 78 Year
  Sex: Female
  Weight: 58.0 kg

DRUGS (26)
  1. HERCEPTIN [Suspect]
     Active Substance: TRASTUZUMAB
     Indication: Breast cancer
     Route: 041
     Dates: start: 20180810, end: 20180810
  2. HERCEPTIN [Suspect]
     Active Substance: TRASTUZUMAB
     Dosage: MOST RECENT DOSE PRIOR TO THE EVENT: 06/NOV/2018
     Route: 041
     Dates: start: 20180921
  3. FEMARA [Suspect]
     Active Substance: LETROZOLE
     Indication: Breast cancer
     Dosage: O.D. - ONCE DAILY
     Route: 048
     Dates: start: 20181029
  4. ONTRUZANT [Suspect]
     Active Substance: TRASTUZUMAB-DTTB
     Indication: Breast cancer
     Dosage: MOST RECENT DOSE WAS ON 11/JAN/2019
     Route: 041
     Dates: start: 20181130
  5. PACLITAXEL [Suspect]
     Active Substance: PACLITAXEL
     Indication: Breast cancer
     Route: 042
     Dates: start: 20180928, end: 20181019
  6. PACLITAXEL [Suspect]
     Active Substance: PACLITAXEL
     Route: 042
     Dates: start: 20180810, end: 20180824
  7. PACLITAXEL [Suspect]
     Active Substance: PACLITAXEL
     Route: 042
     Dates: start: 20180921, end: 20180921
  8. PERJETA [Suspect]
     Active Substance: PERTUZUMAB
     Indication: Breast cancer
     Route: 042
     Dates: start: 20180810, end: 20180810
  9. PERJETA [Suspect]
     Active Substance: PERTUZUMAB
     Route: 042
     Dates: start: 20180921, end: 20190201
  10. METOPROLOL [Concomitant]
     Active Substance: METOPROLOL
  11. PASPERTIN [Concomitant]
     Indication: Nausea
     Dates: start: 20181029
  12. AKTIFERRIN (AUSTRIA) [Concomitant]
     Indication: Anaemia
     Dates: start: 20190103, end: 20190201
  13. YOMOGI [Concomitant]
     Indication: Anaemia
     Dates: start: 20190103, end: 20190115
  14. KALIORAL (AUSTRIA) [Concomitant]
     Indication: Anaemia
     Dosage: ONGOING = NOT CHECKED
     Dates: start: 20190103, end: 20190115
  15. CIPRALEX [Concomitant]
     Active Substance: ESCITALOPRAM OXALATE
     Dates: start: 20190115
  16. AMLODIPINE BESYLATE [Concomitant]
     Active Substance: AMLODIPINE BESYLATE
     Dates: start: 20181215
  17. ASPIRIN [Concomitant]
     Active Substance: ASPIRIN
     Route: 048
     Dates: end: 2018
  18. AMLODIPINE BESYLATE [Concomitant]
     Active Substance: AMLODIPINE BESYLATE
     Route: 048
     Dates: end: 2018
  19. KYTRIL [Concomitant]
     Active Substance: GRANISETRON HYDROCHLORIDE
     Route: 042
     Dates: start: 20180810, end: 20181019
  20. DEXABENE [Concomitant]
     Route: 042
     Dates: start: 20180810, end: 20181019
  21. RANITIDINE HYDROCHLORIDE [Concomitant]
     Active Substance: RANITIDINE HYDROCHLORIDE
     Route: 042
     Dates: start: 20180810, end: 20181019
  22. DIMETHINDENE MALEATE [Concomitant]
     Active Substance: DIMETHINDENE MALEATE
     Route: 042
     Dates: start: 20180810, end: 20181019
  23. XYZAL [Concomitant]
     Active Substance: LEVOCETIRIZINE DIHYDROCHLORIDE
     Route: 048
  24. GLUCOPHAGE [Concomitant]
     Active Substance: METFORMIN HYDROCHLORIDE
     Indication: Diabetes mellitus
     Route: 048
  25. PANTOPRAZOLE SODIUM [Concomitant]
     Active Substance: PANTOPRAZOLE SODIUM
     Route: 048
     Dates: start: 20190405
  26. DENOSUMAB [Concomitant]
     Active Substance: DENOSUMAB
     Indication: Product used for unknown indication
     Route: 065
     Dates: start: 20181012

REACTIONS (1)
  - Diarrhoea [Recovered/Resolved]

NARRATIVE: CASE EVENT DATE: 20181227
